FAERS Safety Report 8339194-4 (Version None)
Quarter: 2012Q2

REPORT INFORMATION
  Report Type: 
  Country: None (occurrence: None)
  Receive Date: 20120502
  Receipt Date: 20120423
  Transmission Date: 20120825
  Serious: Yes (Other)
  Sender: FDA-Public Use
  Company Number: 2010MA004938

PATIENT
  Sex: Female
  Weight: 90.7194 kg

DRUGS (19)
  1. METOCLOPRAMIDE [Suspect]
     Indication: IMPAIRED GASTRIC EMPTYING
     Dosage: 10 MG;30 MIN AC + HS;PO
     Route: 048
     Dates: start: 20040201, end: 20091103
  2. ASPIRIN [Concomitant]
  3. OMEPRAZOLE [Concomitant]
  4. INDAPAMIDE [Concomitant]
  5. LOZOL [Concomitant]
  6. MECLIZINE [Concomitant]
  7. PRILOSEC [Concomitant]
  8. BUPROPION HYDROCHLORIDE [Concomitant]
  9. TRAMADOL HYDROCHLORIDE [Concomitant]
  10. CIMETIDINE [Concomitant]
  11. ZOFRAN [Concomitant]
  12. IBUPROFEN [Concomitant]
  13. DOXYCYCLINE [Concomitant]
  14. ALBUTEROL [Concomitant]
  15. PAXIL [Concomitant]
  16. METHYLPREDNISOLONE ACETATE [Concomitant]
  17. HYDROCODONE BITARTRATE AND ACETAMINOPHEN [Concomitant]
  18. LIPITOR [Concomitant]
  19. ARICEPT [Concomitant]

REACTIONS (6)
  - ECONOMIC PROBLEM [None]
  - EXTRAPYRAMIDAL DISORDER [None]
  - NAUSEA [None]
  - DYSKINESIA [None]
  - TARDIVE DYSKINESIA [None]
  - EMOTIONAL DISORDER [None]
